FAERS Safety Report 9868820 (Version 2)
Quarter: 2014Q1

REPORT INFORMATION
  Report Type: Other
  Country: SE (occurrence: SE)
  Receive Date: 20140204
  Receipt Date: 20140204
  Transmission Date: 20141002
  Serious: Yes (Death, Other)
  Sender: FDA-Public Use
  Company Number: SE-RB-063046-14

PATIENT
  Sex: 0

DRUGS (3)
  1. BUPRENORPHINE UNSPECIFIED [Suspect]
     Indication: DRUG DEPENDENCE
     Route: 060
  2. BUPRENORPHINE UNSPECIFIED [Suspect]
     Route: 060
  3. BUPRENORPHINE UNSPECIFIED [Suspect]
     Route: 060

REACTIONS (3)
  - Drug abuse [Recovered/Resolved]
  - Drug dependence [Recovered/Resolved]
  - Death [Fatal]
